FAERS Safety Report 5408900-0 (Version None)
Quarter: 2007Q3

REPORT INFORMATION
  Report Type: 
  Country: None (occurrence: None)
  Receive Date: 20070808
  Receipt Date: 20070724
  Transmission Date: 20080115
  Serious: Yes (Other)
  Sender: FDA-Public Use
  Company Number: BR-PFIZER INC-2007065033

PATIENT
  Sex: Female

DRUGS (6)
  1. LIPITOR [Suspect]
     Indication: BLOOD CHOLESTEROL
     Route: 048
  2. DOCUSATE SODIUM [Concomitant]
     Route: 065
  3. HIGROTON [Concomitant]
     Route: 048
  4. PREMARIN [Concomitant]
     Route: 065
  5. ENALAPRIL MALEATE [Concomitant]
     Route: 065
  6. PURAN T4 [Concomitant]
     Route: 048

REACTIONS (1)
  - CUTANEOUS VASCULITIS [None]
